FAERS Safety Report 22070979 (Version 1)
Quarter: 2023Q1

REPORT INFORMATION
  Report Type: Spontaneous
  Country: JP (occurrence: JP)
  Receive Date: 20230307
  Receipt Date: 20230307
  Transmission Date: 20230418
  Serious: Yes (Hospitalization)
  Sender: FDA-Public Use
  Company Number: JP-ferring-EVA202300204FERRINGPH

PATIENT

DRUGS (1)
  1. DESMOPRESSIN ACETATE [Suspect]
     Active Substance: DESMOPRESSIN ACETATE
     Indication: Diabetes insipidus
     Dosage: 60 UG, 3 TIMES DAILY (60UG THRICE DAILY AT ONE TABLET AFTER EVERY MEAL)
     Route: 048

REACTIONS (2)
  - Depressed level of consciousness [Unknown]
  - Pneumonia [Unknown]
